FAERS Safety Report 9617693 (Version 1)
Quarter: 2013Q4

REPORT INFORMATION
  Report Type: Report from Study
  Country: US (occurrence: US)
  Receive Date: 20131011
  Receipt Date: 20131011
  Transmission Date: 20140711
  Serious: Yes (Hospitalization)
  Sender: FDA-Public Use
  Company Number: US-PFIZER INC-2013283728

PATIENT
  Age: 34 Year
  Sex: Female
  Weight: 98.9 kg

DRUGS (45)
  1. LISINOPRIL [Concomitant]
     Indication: HYPERTENSION
     Dosage: 5 MG, DAILY
     Route: 048
     Dates: start: 201204
  2. NEURONTIN [Concomitant]
     Indication: NEUROPATHY PERIPHERAL
     Dosage: 400 MG, 3X/DAY
     Route: 048
     Dates: start: 201204
  3. ALBUTEROL JET NEBS [Concomitant]
     Indication: ASTHMA
     Dosage: 2 ML, 4X/DAY (Q6H) PRN, ROUTE: INHALED
     Route: 055
     Dates: start: 201209
  4. BENADRYL [Concomitant]
     Indication: PRURITUS GENERALISED
     Dosage: 25 MG, AS NEEDED Q4H
     Route: 048
     Dates: start: 201204
  5. BENADRYL [Concomitant]
     Indication: PREMEDICATION
     Dosage: 25 MG, AS NEEDED Q4H
     Route: 048
     Dates: start: 20130503
  6. TYLENOL [Concomitant]
     Indication: ABDOMINAL PAIN UPPER
     Dosage: 650 MG, 4X/DAY (Q6H) PRN
     Route: 048
     Dates: start: 201204
  7. TYLENOL [Concomitant]
     Indication: PAIN IN EXTREMITY
     Dosage: 650 MG, PRN, Q4H
     Route: 048
     Dates: start: 20130502
  8. TYLENOL [Concomitant]
     Indication: BODY TEMPERATURE
  9. FAMOTIDINE [Concomitant]
     Indication: GASTROOESOPHAGEAL REFLUX DISEASE
     Dosage: 20 MG, 2X/DAY
     Route: 048
     Dates: start: 201204
  10. INSULIN, REGULAR [Concomitant]
     Indication: DIABETES MELLITUS
     Dosage: SLIDING SCALE, FREQUENCY: AC AND HS
     Route: 058
     Dates: start: 201204
  11. ACYCLOVIR [Concomitant]
     Indication: ANTIVIRAL PROPHYLAXIS
     Dosage: 400 MG, 2X/DAY
     Route: 048
     Dates: start: 20130503, end: 20130714
  12. AMPICILLIN [Concomitant]
     Indication: PROPHYLAXIS
     Dosage: 500 MG, 4X/DAY (Q6H)
     Route: 048
     Dates: start: 20130523, end: 20130602
  13. ZOLOFT [Concomitant]
     Indication: DEPRESSION
     Dosage: 50 MG, DAILY
     Route: 048
     Dates: start: 20130516
  14. DEXAMETHASONE OPTHAL SOL 0.1 % [Concomitant]
     Indication: VISION BLURRED
     Dosage: 2 DROPS OU, Q4H, ROUTE: TOPICALLY TO EYES
     Route: 047
     Dates: start: 201304
  15. ALBUTEROL [Concomitant]
     Indication: ASTHMA
     Dosage: 2 PUFFS, Q4H, PRN, ROUTE: INHALED
     Route: 055
     Dates: start: 201204
  16. AMLODIPINE [Concomitant]
     Indication: HYPERTENSION
     Dosage: 2.5 MG (1/2-5MG TAB), DAILY
     Route: 048
     Dates: start: 20130528
  17. AMOXICILLIN [Concomitant]
     Indication: INFECTION PROPHYLAXIS
     Dosage: 500 MG, 3X/DAY (Q8H)
     Route: 048
     Dates: start: 20130524, end: 20130627
  18. DEXAMETHASONE [Concomitant]
     Indication: DRUG TOLERANCE INCREASED
     Dosage: 10 MG, DAILY PRN
     Route: 042
     Dates: start: 20130502
  19. SIMVASTATIN [Concomitant]
     Indication: HYPERLIPIDAEMIA
     Dosage: 40 MG, DAILY
     Route: 048
     Dates: start: 201204
  20. TUMS [Concomitant]
     Indication: GASTROOESOPHAGEAL REFLUX DISEASE
     Dosage: 500 MG, AS NEEDED
     Route: 048
     Dates: start: 20130514
  21. DAPTOMYCIN [Concomitant]
     Indication: INFECTION PROPHYLAXIS
     Dosage: 600 MG, 1X/DAY (Q24H)
     Route: 042
     Dates: start: 20130701, end: 20130711
  22. AZTREONAM [Concomitant]
     Indication: INFECTION PROPHYLAXIS
     Dosage: 2 G, 3X/DAY (Q8H)
     Route: 042
     Dates: start: 20130630, end: 20130707
  23. CALCIUM/VITAMIN D [Concomitant]
     Indication: VITAMIN SUPPLEMENTATION
     Dosage: 600 MG, 3X/DAY
     Route: 048
     Dates: start: 20130509
  24. CALCIUM/VITAMIN D [Concomitant]
     Indication: MINERAL SUPPLEMENTATION
  25. LORAZEPAM [Concomitant]
     Indication: ANXIETY
     Dosage: 1 MG, AS NEEDED Q4H
     Route: 048
     Dates: start: 20130503
  26. INSULIN ASPART [Concomitant]
     Indication: DIABETES MELLITUS
     Dosage: SLIDING SCALE, Q1H
     Route: 058
     Dates: start: 20130503
  27. HYDROXYZINE HYDROCHLORIDE [Concomitant]
     Indication: ANXIETY
     Dosage: 10 MG, 4X/DAY (Q6H)
     Route: 048
     Dates: start: 201304
  28. METFORMIN [Concomitant]
     Indication: DIABETES MELLITUS
     Dosage: 1000 MG (2-500MG TABS), 2X/DAY
     Route: 048
     Dates: start: 201204
  29. PROCHLORPERAZINE [Concomitant]
     Indication: NAUSEA
     Dosage: 10 MG, 4X/DAY (Q6H), PRN
     Route: 048
     Dates: start: 201204
  30. PROMETHAZINE [Concomitant]
     Indication: NAUSEA
     Dosage: 25 MG, AS NEEDED Q4H
     Route: 048
     Dates: start: 201204
  31. HYDROCHLOROTHIAZIDE [Concomitant]
     Indication: HYPERTENSION
     Dosage: UNK, DAILY
     Route: 048
     Dates: start: 201204
  32. MAGNESIUM [Concomitant]
     Indication: MINERAL SUPPLEMENTATION
     Dosage: 1-2 GMS, AS NEEDED
     Route: 042
     Dates: start: 20130516
  33. ZOFRAN [Concomitant]
     Indication: NAUSEA
     Dosage: 24 MG, DAILY
     Route: 048
     Dates: start: 201304
  34. POTASSIUM CHLORIDE [Concomitant]
     Indication: ELECTROLYTE SUBSTITUTION THERAPY
     Dosage: 40 MEQ (2-20MEQ TABS), 2X/DAY
     Route: 048
     Dates: start: 20130514
  35. AMBIEN [Concomitant]
     Indication: INSOMNIA
     Dosage: 5 MG (1 DF), 1X/DAY (QHS)
     Route: 048
     Dates: start: 20130517
  36. NORMAL SALINE 0.9 % [Concomitant]
     Indication: PROPHYLAXIS AGAINST DEHYDRATION
     Dosage: 1000 ML, AS NEEDED
     Route: 042
     Dates: start: 20130503
  37. NEUPOGEN [Concomitant]
     Indication: NEUTROPENIA
     Dosage: 1 ML, DAILY PRN
     Route: 058
     Dates: start: 20130702, end: 20130707
  38. LASIX [Concomitant]
     Indication: PULMONARY OEDEMA
     Dosage: 20 MG, DAILY
     Route: 048
     Dates: start: 20130702, end: 20130709
  39. LEVALBUTEROL [Concomitant]
     Indication: ASTHMA
     Dosage: 2 ML, 4X/DAY (Q6H) ROUTE: INHALED
     Route: 055
     Dates: start: 20130702, end: 20130702
  40. MORPHINE [Concomitant]
     Indication: PAIN
     Dosage: 2 MG, AS NEEDED
     Route: 042
     Dates: start: 20130630, end: 20130703
  41. VANCOMYCIN [Concomitant]
     Indication: ANTIBIOTIC PROPHYLAXIS
     Dosage: 1500 MG, 2X/DAY (Q12H)
     Route: 042
     Dates: start: 20130630, end: 20130708
  42. VORICONAZOLE [Concomitant]
     Indication: ANTIFUNGAL PROPHYLAXIS
     Dosage: 300 MG, 2X/DAY
     Route: 048
     Dates: start: 20130701, end: 20130714
  43. NEULASTA [Concomitant]
     Indication: NEUTROPENIA
     Dosage: 6 MG, AS NEEDED
     Route: 058
     Dates: start: 20130514
  44. CYTARABINE [Suspect]
     Indication: ACUTE LYMPHOCYTIC LEUKAEMIA
     Dosage: 2X/DAY (EVERY 12 HOURS); SPECIFY THE NUMBER OF DOSES GIVEN DURING THE MOST RECENT CYCLE
     Route: 042
  45. ALLOPURINOL [Concomitant]
     Indication: HYPERURICAEMIA
     Dosage: 300 MG, DAILY
     Route: 048
     Dates: start: 201207

REACTIONS (2)
  - Respiratory failure [Recovered/Resolved]
  - Sepsis [Recovered/Resolved]
